FAERS Safety Report 24394273 (Version 2)
Quarter: 2024Q4

REPORT INFORMATION
  Report Type: Report from Study
  Country: CA (occurrence: CA)
  Receive Date: 20241004
  Receipt Date: 20241101
  Transmission Date: 20250115
  Serious: Yes (Other)
  Sender: ABBVIE
  Company Number: CA-ABBVIE-5947302

PATIENT
  Age: 52 Year
  Sex: Female

DRUGS (1)
  1. BOTOX [Suspect]
     Active Substance: ONABOTULINUMTOXINA
     Indication: Migraine
     Dosage: TIME INTERVAL: AS NECESSARY: FREQUENCY- EVERY THREE MONTHS
     Route: 030
     Dates: start: 20230905, end: 20230905

REACTIONS (4)
  - Cataract [Unknown]
  - Anal incontinence [Unknown]
  - Urinary incontinence [Unknown]
  - Visual impairment [Not Recovered/Not Resolved]
